FAERS Safety Report 13842895 (Version 3)
Quarter: 2019Q1

REPORT INFORMATION
  Report Type: Spontaneous
  Country: PL (occurrence: PL)
  Receive Date: 20170808
  Receipt Date: 20190302
  Transmission Date: 20190417
  Serious: Yes (Hospitalization, Other)
  Sender: FDA-Public Use
  Company Number: PL-SUN PHARMACEUTICAL INDUSTRIES LTD-2017RR-146958

PATIENT
  Age: 51 Year
  Sex: Female

DRUGS (6)
  1. GEMCITABINE [Suspect]
     Active Substance: GEMCITABINE\GEMCITABINE HYDROCHLORIDE
     Dosage: CYCLES ADMINISTERED AT 21-DAY INTERVALS (ON 1 AND 8TH DAY)
     Route: 065
  2. CISPLATIN. [Suspect]
     Active Substance: CISPLATIN
     Indication: RENAL CANCER STAGE III
     Dosage: CYCLES ADMINISTERED AT 21-DAY INTERVALS (ON 1 AND 8TH DAY)
     Route: 065
  3. CISPLATIN. [Suspect]
     Active Substance: CISPLATIN
     Indication: TRANSITIONAL CELL CARCINOMA
     Dosage: CYCLES ADMINISTERED AT 21-DAY INTERVALS (ON 1 AND 8TH DAY)
     Route: 065
  4. GEMCITABINE [Suspect]
     Active Substance: GEMCITABINE\GEMCITABINE HYDROCHLORIDE
     Indication: TRANSITIONAL CELL CARCINOMA
     Dosage: CYCLES ADMINISTERED AT 21-DAY INTERVALS (ON 1 AND 8TH DAY)
     Route: 065
  5. CISPLATIN. [Suspect]
     Active Substance: CISPLATIN
     Dosage: CYCLES ADMINISTERED AT 21-DAY INTERVALS (ON 1 AND 8TH DAY)
     Route: 065
  6. GEMCITABINE [Suspect]
     Active Substance: GEMCITABINE\GEMCITABINE HYDROCHLORIDE
     Indication: SQUAMOUS CELL CARCINOMA
     Dosage: CYCLES ADMINISTERED AT 21-DAY INTERVALS (ON 1 AND 8TH DAY)
     Route: 065

REACTIONS (5)
  - Toxicity to various agents [Recovering/Resolving]
  - Tinnitus [Unknown]
  - Anaemia [Recovering/Resolving]
  - Pleural effusion [Not Recovered/Not Resolved]
  - Chest pain [Unknown]
